FAERS Safety Report 23052357 (Version 2)
Quarter: 2023Q4

REPORT INFORMATION
  Report Type: Report from Study
  Country: US (occurrence: US)
  Receive Date: 20231011
  Receipt Date: 20231013
  Transmission Date: 20240110
  Serious: No
  Sender: FDA-Public Use
  Company Number: US-ABBVIE-5442699

PATIENT
  Sex: Female

DRUGS (1)
  1. VENCLEXTA [Suspect]
     Active Substance: VENETOCLAX
     Indication: Acute myeloid leukaemia
     Dosage: FORM STRENGTH 100 MILLIGRAM?TAKE 1 TABLET BY MOUTH ON DAY 1, 2 TABLETS ON DAY 2, THEN 4 TABLETS O...
     Route: 048

REACTIONS (1)
  - Neutropenia [Unknown]
